FAERS Safety Report 23118408 (Version 1)
Quarter: 2023Q4

REPORT INFORMATION
  Report Type: Spontaneous
  Country: US (occurrence: US)
  Receive Date: 20231028
  Receipt Date: 20231028
  Transmission Date: 20240110
  Serious: Yes (Hospitalization)
  Sender: FDA-Public Use
  Company Number: US-ABBVIE-5470890

PATIENT
  Sex: Female

DRUGS (1)
  1. IMBRUVICA [Suspect]
     Active Substance: IBRUTINIB
     Indication: Product used for unknown indication
     Dosage: 140 MG?TAKE 2 CAPSULES BY MOUTH ONCE DAILY.  CAPSULES SHOULD BE TAKEN WITH A GLASS OF WATER.
     Route: 048

REACTIONS (1)
  - Hospitalisation [Recovered/Resolved]
